FAERS Safety Report 13375298 (Version 1)
Quarter: 2017Q1

REPORT INFORMATION
  Report Type: Spontaneous
  Country: US (occurrence: US)
  Receive Date: 20170327
  Receipt Date: 20170327
  Transmission Date: 20170429
  Serious: Yes (Other)
  Sender: FDA-Public Use
  Company Number: US-ASTRAZENECA-2017SE29477

PATIENT
  Sex: Female
  Weight: 83.9 kg

DRUGS (14)
  1. PROVENTIL HFA [Concomitant]
     Active Substance: ALBUTEROL SULFATE
     Indication: WHEEZING
     Dosage: TWO PUFFS EVERY SIX HOURS
     Route: 055
  2. VOLTAREN [Concomitant]
     Active Substance: DICLOFENAC SODIUM
     Route: 048
  3. ERYTHROMYCIN. [Concomitant]
     Active Substance: ERYTHROMYCIN
     Route: 047
  4. MEDROL [Concomitant]
     Active Substance: METHYLPREDNISOLONE
     Dosage: TAKE SIX PILLS ON DAY ONE THEN DECREASE BY ONE PILL EACH DAY
     Route: 048
  5. COREG [Concomitant]
     Active Substance: CARVEDILOL
     Dosage: 25.0MG UNKNOWN
     Route: 048
  6. PRILOSEC [Suspect]
     Active Substance: OMEPRAZOLE MAGNESIUM
     Dosage: 20.0MG UNKNOWN
     Route: 048
  7. IBRANCE [Suspect]
     Active Substance: PALBOCICLIB
     Dosage: TAKE ONE CAPSULE DAILY WITH BREAKFAST. TAKE WHOLE WITH FOOD. TAKE FOR THREE WEEKS THEN ONE WEEK OFF
     Route: 048
  8. LIORESAL [Concomitant]
     Active Substance: BACLOFEN
     Route: 048
  9. PROVENTIL HFA [Concomitant]
     Active Substance: ALBUTEROL SULFATE
     Indication: DYSPNOEA
     Dosage: TWO PUFFS EVERY SIX HOURS
     Route: 055
  10. NORCO\VICODIN [Concomitant]
     Indication: PAIN
     Dosage: 5/325 MG, EVERY SIX HOURS AS NEEDED.
     Route: 048
  11. HYZAAR [Concomitant]
     Active Substance: HYDROCHLOROTHIAZIDE\LOSARTAN POTASSIUM
     Dosage: 50/12.5 MG
     Route: 048
  12. ULTRAM [Concomitant]
     Active Substance: TRAMADOL HYDROCHLORIDE
     Dosage: 50 MG, EVERY SIX HOURS AS NEEDED
     Route: 048
  13. NOLVADEX [Suspect]
     Active Substance: TAMOXIFEN CITRATE
     Dosage: 20.0MG UNKNOWN
     Route: 048
  14. LYRICA [Concomitant]
     Active Substance: PREGABALIN
     Dosage: 75.0MG UNKNOWN
     Route: 048

REACTIONS (5)
  - Malignant neoplasm progression [Unknown]
  - Aortic arteriosclerosis [Unknown]
  - Metastases to bone [Unknown]
  - Metastases to lymph nodes [Unknown]
  - Cough [Unknown]
